FAERS Safety Report 5708251-0 (Version None)
Quarter: 2008Q2

REPORT INFORMATION
  Report Type: 
  Country: None (occurrence: None)
  Receive Date: 20080417
  Receipt Date: 20080411
  Transmission Date: 20081010
  Serious: Yes (Hospitalization)
  Sender: FDA-Public Use
  Company Number: GB-ROCHE-558341

PATIENT
  Sex: Female
  Weight: 120.7 kg

DRUGS (8)
  1. ORLISTAT [Suspect]
     Indication: OBESITY
     Route: 048
     Dates: start: 20071019
  2. METFORMIN HCL [Concomitant]
     Route: 048
  3. ALDACTONE [Concomitant]
     Route: 048
  4. LASIX [Concomitant]
     Route: 048
  5. STATINS [Concomitant]
     Route: 048
  6. DICLOFENAC SODIUM [Concomitant]
     Route: 048
  7. MIRTAZAPINE [Concomitant]
     Route: 048
  8. UNSPECIFIED DRUG [Concomitant]
     Dosage: DRUG REPORTED AS CEROXICILLIN
     Route: 048

REACTIONS (1)
  - SYNOVIAL CYST [None]
